FAERS Safety Report 9259591 (Version 3)
Quarter: 2014Q2

REPORT INFORMATION
  Report Type: Spontaneous
  Country: US (occurrence: US)
  Receive Date: 20130429
  Receipt Date: 20140401
  Transmission Date: 20141212
  Serious: No
  Sender: FDA-Public Use
  Company Number: US-ASTRAZENECA-2013SE27555

PATIENT
  Age: 59 Year
  Sex: Female
  Weight: 78 kg

DRUGS (10)
  1. NEXIUM [Suspect]
     Indication: GASTROOESOPHAGEAL REFLUX DISEASE
     Route: 048
     Dates: start: 2000, end: 2010
  2. NEXIUM [Suspect]
     Indication: GASTROOESOPHAGEAL REFLUX DISEASE
     Route: 048
     Dates: start: 20081014
  3. PRILOSEC [Suspect]
     Indication: GASTROOESOPHAGEAL REFLUX DISEASE
     Route: 048
  4. PRILOSEC [Suspect]
     Indication: GASTROOESOPHAGEAL REFLUX DISEASE
     Route: 048
     Dates: start: 20090731
  5. AMLODIPINE [Concomitant]
     Indication: HYPERTENSION
     Dates: start: 20090910
  6. SIMVASTATIN [Concomitant]
     Indication: BLOOD CHOLESTEROL ABNORMAL
     Dates: start: 20090821
  7. FISH OIL [Concomitant]
     Dates: start: 20090731
  8. NORVASC [Concomitant]
     Dates: start: 20090406
  9. ZOCOR [Concomitant]
     Dates: start: 20090406
  10. PROCHLORPERAZINE [Concomitant]
     Dates: start: 20090804

REACTIONS (8)
  - Osteoporosis [Unknown]
  - Bone disorder [Unknown]
  - Multiple fractures [Unknown]
  - Foot fracture [Unknown]
  - Back injury [Unknown]
  - Road traffic accident [Unknown]
  - Arthritis [Unknown]
  - Osteoarthritis [Unknown]
